FAERS Safety Report 25644139 (Version 1)
Quarter: 2025Q3

REPORT INFORMATION
  Report Type: Other
  Country: CA (occurrence: CA)
  Receive Date: 20250805
  Receipt Date: 20250805
  Transmission Date: 20251021
  Serious: Yes (Hospitalization)
  Sender: ANI
  Company Number: CA-ANIPHARMA-023955

PATIENT
  Age: 44 Year
  Sex: Male

DRUGS (3)
  1. RISPERIDONE [Suspect]
     Active Substance: RISPERIDONE
     Indication: Schizophrenia
  2. Xanomeline/Trospium chloride [Concomitant]
     Indication: Schizophrenia
  3. Xanomeline/Trospium chloride [Concomitant]
     Indication: Schizophrenia

REACTIONS (5)
  - Nervous system disorder [Recovered/Resolved]
  - Symptom recurrence [Unknown]
  - Treatment noncompliance [Unknown]
  - Akathisia [Unknown]
  - Metabolic disorder [Unknown]
